FAERS Safety Report 26052883 (Version 1)
Quarter: 2025Q4

REPORT INFORMATION
  Report Type: Spontaneous
  Country: US (occurrence: US)
  Receive Date: 20251117
  Receipt Date: 20251117
  Transmission Date: 20260118
  Serious: Yes (Hospitalization)
  Sender: HIKMA
  Company Number: US-HIKMA PHARMACEUTICALS USA INC.-US-H14001-24-05931

PATIENT
  Sex: Female

DRUGS (1)
  1. LORAZEPAM INTENSOL [Suspect]
     Active Substance: LORAZEPAM
     Indication: Restlessness
     Dosage: 0.5MG
     Route: 042

REACTIONS (2)
  - Atrial fibrillation [Unknown]
  - Incorrect route of product administration [Unknown]
